FAERS Safety Report 21887923 (Version 7)
Quarter: 2023Q1

REPORT INFORMATION
  Report Type: Spontaneous
  Country: CZ (occurrence: CZ)
  Receive Date: 20230120
  Receipt Date: 20230321
  Transmission Date: 20230417
  Serious: Yes (Hospitalization)
  Sender: FDA-Public Use
  Company Number: CZ-ROCHE-3239692

PATIENT
  Age: 79 Year
  Sex: Male
  Weight: 77.6 kg

DRUGS (21)
  1. NINTEDANIB [Suspect]
     Active Substance: NINTEDANIB
     Indication: Idiopathic pulmonary fibrosis
     Dosage: ON 30/NOV/2022, HE RECEIVED MOST RECENT DOSE OF NINTEDANIB 150 MG PRIOR TO SAE.
     Route: 048
     Dates: start: 20170411
  2. PIRFENIDONE [Suspect]
     Active Substance: PIRFENIDONE
     Indication: Idiopathic pulmonary fibrosis
     Route: 048
     Dates: start: 20160718
  3. PRADAXA [Concomitant]
     Active Substance: DABIGATRAN ETEXILATE MESYLATE
     Indication: Product used for unknown indication
     Dates: start: 2012, end: 20221127
  4. ZINPENTRAXIN ALFA [Concomitant]
     Active Substance: ZINPENTRAXIN ALFA
     Indication: Idiopathic pulmonary fibrosis
     Dosage: ON 10/NOV/2022, AT 9:08 AM  RECEIVED MOST RECENT DOSE OF ZINPENTRAXIN ALFA PRIOR TO SAE AND ENDED AT
     Dates: start: 20221012
  5. SPIRONOLACTONE [Concomitant]
     Active Substance: SPIRONOLACTONE
     Indication: Pulmonary hypertension
     Dates: start: 202106, end: 20221130
  6. ELIQUIS [Concomitant]
     Active Substance: APIXABAN
     Indication: Product used for unknown indication
     Dates: start: 20221130
  7. DIOSMIN\HESPERIDIN [Concomitant]
     Active Substance: DIOSMIN\HESPERIDIN
     Indication: Product used for unknown indication
     Dates: start: 2005, end: 20221130
  8. LANSOPRAZOLE [Concomitant]
     Active Substance: LANSOPRAZOLE
     Indication: Product used for unknown indication
     Dates: start: 202106, end: 20221130
  9. PREDNISONE [Concomitant]
     Active Substance: PREDNISONE
     Indication: Idiopathic pulmonary fibrosis
     Dates: start: 202106, end: 20221130
  10. PREDNISONE [Concomitant]
     Active Substance: PREDNISONE
     Dates: start: 202212
  11. NEBIVOLOL [Concomitant]
     Active Substance: NEBIVOLOL
     Indication: Product used for unknown indication
     Dates: start: 2012, end: 20221130
  12. TELMISARTAN [Concomitant]
     Active Substance: TELMISARTAN
     Indication: Pulmonary hypertension
     Dates: start: 2012, end: 20221130
  13. FUROSEMIDE [Concomitant]
     Active Substance: FUROSEMIDE
     Indication: Pulmonary hypertension
     Dates: start: 20220916, end: 20221130
  14. FUROSEMIDE [Concomitant]
     Active Substance: FUROSEMIDE
     Dates: start: 20221201
  15. ALLOPURINOL [Concomitant]
     Active Substance: ALLOPURINOL
     Indication: Hyperuricaemia
     Dates: start: 20221130
  16. ALLOPURINOL [Concomitant]
     Active Substance: ALLOPURINOL
     Dates: start: 20221212
  17. METOPROLOL SUCCINATE [Concomitant]
     Active Substance: METOPROLOL SUCCINATE
     Indication: Sinus tachycardia
     Dates: start: 20221201
  18. OXYGEN [Concomitant]
     Active Substance: OXYGEN
     Indication: Idiopathic pulmonary fibrosis
     Dosage: 2 DOSAGE FORM
     Dates: start: 202106
  19. DIGOXIN [Concomitant]
     Active Substance: DIGOXIN
     Indication: Sinus tachycardia
     Dates: start: 20221130
  20. DIGOXIN [Concomitant]
     Active Substance: DIGOXIN
     Dates: start: 20221212
  21. ZINPENTRAXIN ALFA [Concomitant]
     Active Substance: ZINPENTRAXIN ALFA
     Indication: Product used for unknown indication
     Dosage: ON 10/NOV/2022, AT 9:08 AM  RECEIVED MOST RECENT DOSE OF ZINPENTRAXIN ALFA PRIOR TO SAE AND ENDED AT
     Dates: start: 20221110

REACTIONS (1)
  - Dyspnoea [Recovered/Resolved]

NARRATIVE: CASE EVENT DATE: 20221130
